FAERS Safety Report 8571628-2 (Version None)
Quarter: 2012Q3

REPORT INFORMATION
  Report Type: 
  Country: None (occurrence: None)
  Receive Date: 20120806
  Receipt Date: 20120725
  Transmission Date: 20120928
  Serious: Yes (Hospitalization)
  Sender: FDA-Public Use
  Company Number: US-BAYER-2012-025322

PATIENT
  Age: 29 Year
  Sex: Female

DRUGS (2)
  1. PHENTERMINE [Concomitant]
     Route: 048
  2. YASMIN [Suspect]
     Dosage: UNK
     Dates: start: 20080111, end: 20100819

REACTIONS (5)
  - CHEST PAIN [None]
  - PULMONARY INFARCTION [None]
  - DYSPNOEA [None]
  - THROMBOPHLEBITIS SUPERFICIAL [None]
  - PULMONARY EMBOLISM [None]
